FAERS Safety Report 25611438 (Version 1)
Quarter: 2025Q3

REPORT INFORMATION
  Report Type: Spontaneous
  Country: US (occurrence: US)
  Receive Date: 20250728
  Receipt Date: 20250728
  Transmission Date: 20251020
  Serious: Yes (Death, Hospitalization)
  Sender: MYLAN
  Company Number: US-MYLANLABS-2025M1063950

PATIENT
  Age: 39 Year
  Sex: Female

DRUGS (20)
  1. SILDENAFIL [Suspect]
     Active Substance: SILDENAFIL
     Indication: Pulmonary arterial hypertension
  2. SILDENAFIL [Suspect]
     Active Substance: SILDENAFIL
     Route: 065
  3. SILDENAFIL [Suspect]
     Active Substance: SILDENAFIL
     Route: 065
  4. SILDENAFIL [Suspect]
     Active Substance: SILDENAFIL
  5. FUROSEMIDE [Suspect]
     Active Substance: FUROSEMIDE
     Indication: Pulmonary arterial hypertension
  6. FUROSEMIDE [Suspect]
     Active Substance: FUROSEMIDE
     Route: 065
  7. FUROSEMIDE [Suspect]
     Active Substance: FUROSEMIDE
     Route: 065
  8. FUROSEMIDE [Suspect]
     Active Substance: FUROSEMIDE
  9. MILRINONE [Suspect]
     Active Substance: MILRINONE
     Indication: Right ventricular failure
  10. MILRINONE [Suspect]
     Active Substance: MILRINONE
     Route: 065
  11. MILRINONE [Suspect]
     Active Substance: MILRINONE
     Route: 065
  12. MILRINONE [Suspect]
     Active Substance: MILRINONE
  13. VASOPRESSIN [Suspect]
     Active Substance: VASOPRESSIN
     Indication: Right ventricular failure
  14. VASOPRESSIN [Suspect]
     Active Substance: VASOPRESSIN
     Route: 065
  15. VASOPRESSIN [Suspect]
     Active Substance: VASOPRESSIN
     Route: 065
  16. VASOPRESSIN [Suspect]
     Active Substance: VASOPRESSIN
  17. PHENTERMINE [Concomitant]
     Active Substance: PHENTERMINE
     Indication: Weight decreased
  18. PHENTERMINE [Concomitant]
     Active Substance: PHENTERMINE
     Route: 065
  19. PHENTERMINE [Concomitant]
     Active Substance: PHENTERMINE
     Route: 065
  20. PHENTERMINE [Concomitant]
     Active Substance: PHENTERMINE

REACTIONS (1)
  - Drug ineffective [Fatal]
